FAERS Safety Report 5092162-0 (Version None)
Quarter: 2006Q3

REPORT INFORMATION
  Report Type: 
  Country: None (occurrence: None)
  Receive Date: 20060727
  Receipt Date: 20060523
  Transmission Date: 20061208
  Serious: Yes (Other)
  Sender: FDA-Public Use
  Company Number: 2006054986

PATIENT
  Age: 67 Year
  Sex: Male

DRUGS (4)
  1. LYRICA [Suspect]
     Indication: EPILEPSY
     Dosage: 300 MG (100 MG,3 IN 1 D)
     Dates: start: 20060315, end: 20060410
  2. LAMICTAL [Suspect]
     Indication: COMPLEX PARTIAL SEIZURES
     Dates: start: 20040201
  3. FELBATOL [Suspect]
     Indication: COMPLEX PARTIAL SEIZURES
     Dosage: 500 MG (250 MG,2 IN 1 D)
     Dates: start: 20040201, end: 20060404
  4. HYDROCHLOROTHIAZIDE [Concomitant]
     Indication: ILL-DEFINED DISORDER
     Dosage: 25 MG (25 MG,1 IN 1 D)
     Dates: end: 20060412

REACTIONS (3)
  - ASTHENIA [None]
  - BLOOD CREATINE PHOSPHOKINASE INCREASED [None]
  - RED BLOOD CELL SEDIMENTATION RATE INCREASED [None]
